FAERS Safety Report 8004815-2 (Version None)
Quarter: 2011Q4

REPORT INFORMATION
  Report Type: 
  Country: None (occurrence: None)
  Receive Date: 20111223
  Receipt Date: 20111213
  Transmission Date: 20120403
  Serious: Yes (Hospitalization)
  Sender: FDA-Public Use
  Company Number: US-BRISTOL-MYERS SQUIBB COMPANY-16293730

PATIENT
  Age: 46 Year
  Sex: Male
  Weight: 78 kg

DRUGS (6)
  1. LISINOPRIL [Concomitant]
     Indication: BLOOD PRESSURE
  2. CELEBREX [Concomitant]
  3. METFORMIN HCL [Suspect]
  4. ATENOLOL [Concomitant]
     Indication: BLOOD PRESSURE
  5. PLAVIX [Suspect]
     Route: 048
     Dates: start: 20090101
  6. PRAVASTATIN SODIUM [Concomitant]

REACTIONS (8)
  - CHEST PAIN [None]
  - ATRIOVENTRICULAR BLOCK [None]
  - DIZZINESS [None]
  - COLD SWEAT [None]
  - NAUSEA [None]
  - DYSPEPSIA [None]
  - PALPITATIONS [None]
  - VISUAL ACUITY REDUCED [None]
